FAERS Safety Report 6185018-3 (Version None)
Quarter: 2009Q2

REPORT INFORMATION
  Report Type: 
  Country: None (occurrence: None)
  Receive Date: 20090511
  Receipt Date: 20090402
  Transmission Date: 20091009
  Serious: No
  Sender: FDA-Public Use
  Company Number: A0776857A

PATIENT
  Sex: Female

DRUGS (2)
  1. COREG CR [Suspect]
     Route: 048
  2. BEER [Concomitant]

REACTIONS (1)
  - ERYTHEMA [None]
